FAERS Safety Report 22244288 (Version 2)
Quarter: 2023Q4

REPORT INFORMATION
  Report Type: Report from Study
  Country: SE (occurrence: SE)
  Receive Date: 20230424
  Receipt Date: 20231123
  Transmission Date: 20240110
  Serious: Yes (Hospitalization)
  Sender: FDA-Public Use
  Company Number: SE-ABBVIE-4724589

PATIENT
  Sex: Male

DRUGS (5)
  1. CARBIDOPA\LEVODOPA [Suspect]
     Active Substance: CARBIDOPA\LEVODOPA
     Indication: Parkinson^s disease
     Dosage: MORNING DOSE DECREASED FROM 6 ML TO 5 ML.
     Route: 050
     Dates: start: 20230417
  2. CARBIDOPA\LEVODOPA [Suspect]
     Active Substance: CARBIDOPA\LEVODOPA
     Dosage: THERAPY DURATION: REMAINS AT 16H
     Route: 050
     Dates: start: 20230315
  3. CARBIDOPA\LEVODOPA [Suspect]
     Active Substance: CARBIDOPA\LEVODOPA
     Dosage: DOSE INCREASED
     Route: 050
     Dates: start: 2023
  4. Naso [Concomitant]
     Indication: Product used for unknown indication
  5. Ringer Acetat [Concomitant]
     Indication: Product used for unknown indication

REACTIONS (16)
  - Herpes zoster [Unknown]
  - Mental disorder [Unknown]
  - Musculoskeletal stiffness [Unknown]
  - Dysarthria [Unknown]
  - Muscular weakness [Unknown]
  - Herpes zoster [Recovered/Resolved]
  - General physical health deterioration [Unknown]
  - Fatigue [Unknown]
  - Hallucination [Unknown]
  - Decreased appetite [Unknown]
  - Pain [Unknown]
  - Aphasia [Unknown]
  - Muscular weakness [Unknown]
  - Impulse-control disorder [Unknown]
  - Derealisation [Unknown]
  - Wheelchair user [Unknown]

NARRATIVE: CASE EVENT DATE: 20230101
